FAERS Safety Report 16077018 (Version 4)
Quarter: 2019Q2

REPORT INFORMATION
  Report Type: Report from Study
  Country: FR (occurrence: FR)
  Receive Date: 20190315
  Receipt Date: 20190607
  Transmission Date: 20190711
  Serious: Yes (Death, Hospitalization, Other)
  Sender: FDA-Public Use
  Company Number: PHHO2019FR002758

PATIENT
  Age: 75 Year
  Sex: Male
  Weight: 67 kg

DRUGS (7)
  1. HDM201 [Suspect]
     Active Substance: SIREMADLIN
     Indication: LIPOSARCOMA
     Dosage: 50 MG, QD
     Route: 048
     Dates: start: 20151216, end: 20181109
  2. REQUIP LP [Concomitant]
     Active Substance: ROPINIROLE HYDROCHLORIDE
     Indication: PARKINSON^S DISEASE
     Dosage: 6 MG, QD
     Route: 048
     Dates: start: 20180706
  3. AZILECT [Concomitant]
     Active Substance: RASAGILINE MESYLATE
     Indication: PARKINSON^S DISEASE
     Dosage: 1 G, PRN
     Route: 048
     Dates: start: 20160207
  4. LEE011 [Suspect]
     Active Substance: RIBOCICLIB
     Indication: LIPOSARCOMA
     Dosage: 200 MG, QD
     Route: 048
     Dates: start: 20151216, end: 20181122
  5. GUTRON [Concomitant]
     Active Substance: MIDODRINE
     Indication: PARKINSON^S DISEASE
     Dosage: 2.5 MG, TID
     Route: 048
     Dates: start: 20181212
  6. PARACETAMOL [Concomitant]
     Active Substance: ACETAMINOPHEN
     Indication: PAIN
     Dosage: 1 G, PRN
     Route: 048
     Dates: start: 20180228
  7. MODAPRO [Concomitant]
     Indication: PARKINSON^S DISEASE
     Dosage: 250 MG, QID
     Route: 048
     Dates: start: 201011

REACTIONS (2)
  - Second primary malignancy [Fatal]
  - Myelodysplastic syndrome [Fatal]

NARRATIVE: CASE EVENT DATE: 20190305
